FAERS Safety Report 4913259-9 (Version None)
Quarter: 2006Q1

REPORT INFORMATION
  Report Type: 
  Country: None (occurrence: None)
  Receive Date: 20060210
  Receipt Date: 20060130
  Transmission Date: 20060701
  Serious: No
  Sender: FDA-Public Use
  Company Number: FR-2006-001714

PATIENT
  Age: 32 Year
  Sex: Female

DRUGS (1)
  1. MIRENA [Suspect]
     Indication: CONTRACEPTION
     Dosage: 20 UG/DAY, CONT, INTRA-UTERINE
     Route: 015
     Dates: end: 20050101

REACTIONS (2)
  - METRORRHAGIA [None]
  - UTERINE LEIOMYOMA [None]
